FAERS Safety Report 20068002 (Version 1)
Quarter: 2021Q4

REPORT INFORMATION
  Report Type: Spontaneous
  Country: US (occurrence: None)
  Receive Date: 20211112
  Receipt Date: 20211112
  Transmission Date: 20220303
  Serious: Yes (Life-Threatening)
  Sender: FDA-Public Use
  Company Number: None

PATIENT
  Age: 67 Year
  Sex: Female
  Weight: 46 kg

DRUGS (20)
  1. CHANTIX [Suspect]
     Active Substance: VARENICLINE TARTRATE
     Indication: Nicotine dependence
  2. POTASSIUM [Concomitant]
     Active Substance: POTASSIUM
  3. DOCUSATE [Concomitant]
     Active Substance: DOCUSATE
  4. ALBUTEROL\IPRATROPIUM [Concomitant]
     Active Substance: ALBUTEROL\IPRATROPIUM
  5. HYDROXYCHLOROQUINE [Concomitant]
     Active Substance: HYDROXYCHLOROQUINE
  6. FLUTICASONE [Concomitant]
     Active Substance: FLUTICASONE
  7. ASCORBIC ACID [Concomitant]
     Active Substance: ASCORBIC ACID
  8. CHOLECALCIFEROL [Concomitant]
     Active Substance: CHOLECALCIFEROL
  9. LOSARTAN [Concomitant]
     Active Substance: LOSARTAN
  10. CREON [Concomitant]
     Active Substance: PANCRELIPASE AMYLASE\PANCRELIPASE LIPASE\PANCRELIPASE PROTEASE
  11. PANTOPRAZOLE [Concomitant]
     Active Substance: PANTOPRAZOLE
  12. NICOTINE [Concomitant]
     Active Substance: NICOTINE
  13. BACLOFEN [Concomitant]
     Active Substance: BACLOFEN
  14. PREGABALIN [Concomitant]
     Active Substance: PREGABALIN
  15. SENNOSIDES [Concomitant]
     Active Substance: SENNOSIDES
  16. ACETAMINOPHEN [Concomitant]
     Active Substance: ACETAMINOPHEN
  17. DULOXETINE [Concomitant]
     Active Substance: DULOXETINE
  18. FLUTICASONE PROPIONATE\SALMETEROL XINAFOATE [Concomitant]
     Active Substance: FLUTICASONE PROPIONATE\SALMETEROL XINAFOATE
  19. AMLODIPINE [Concomitant]
     Active Substance: AMLODIPINE BESYLATE
  20. FERROUS GLUCONATE [Concomitant]
     Active Substance: FERROUS GLUCONATE

REACTIONS (5)
  - Recalled product [None]
  - Product contamination [None]
  - Carcinogenicity [None]
  - Lung neoplasm malignant [None]
  - Neoplasm malignant [None]

NARRATIVE: CASE EVENT DATE: 20210526
